FAERS Safety Report 17550023 (Version 2)
Quarter: 2020Q2

REPORT INFORMATION
  Report Type: Report from Study
  Country: CL (occurrence: CL)
  Receive Date: 20200317
  Receipt Date: 20200513
  Transmission Date: 20200713
  Serious: Yes (Hospitalization, Other)
  Sender: FDA-Public Use
  Company Number: CL-JNJFOC-20200309583

PATIENT
  Sex: Female

DRUGS (1)
  1. SIMPONI [Suspect]
     Active Substance: GOLIMUMAB
     Indication: RHEUMATOID ARTHRITIS
     Route: 058
     Dates: start: 20171130

REACTIONS (8)
  - Haemorrhage [Unknown]
  - Antiphospholipid syndrome [Unknown]
  - Thrombosis [Unknown]
  - Amnesia [Unknown]
  - Balance disorder [Unknown]
  - Amaurosis [Unknown]
  - Uveitis [Unknown]
  - Fall [Unknown]
